FAERS Safety Report 8317207-3 (Version None)
Quarter: 2012Q2

REPORT INFORMATION
  Report Type: 
  Country: None (occurrence: None)
  Receive Date: 20120425
  Receipt Date: 20120423
  Transmission Date: 20120825
  Serious: Yes (Hospitalization, Other)
  Sender: FDA-Public Use
  Company Number: ADR-2011-10029

PATIENT
  Age: 69 Year
  Sex: Female

DRUGS (6)
  1. PURSENNID [Concomitant]
  2. BACLOFEN [Suspect]
     Indication: MUSCLE SPASTICITY
     Dosage: UNK MCG, DAILY, INTRATH
     Route: 037
     Dates: start: 20110106
  3. LIORESAL (ORAL) [Concomitant]
  4. RISUMIC [Concomitant]
  5. MAGMITT [Concomitant]
  6. LEVOFLOXACIN [Concomitant]

REACTIONS (6)
  - ATELECTASIS [None]
  - BLOOD PRESSURE DECREASED [None]
  - PNEUMONIA ASPIRATION [None]
  - PYREXIA [None]
  - PLEURAL EFFUSION [None]
  - HEART RATE DECREASED [None]
